FAERS Safety Report 21409232 (Version 1)
Quarter: 2022Q4

REPORT INFORMATION
  Report Type: Report from Study
  Country: US (occurrence: US)
  Receive Date: 20221004
  Receipt Date: 20221004
  Transmission Date: 20230112
  Serious: No
  Sender: FDA-Public Use
  Company Number: US-ABBVIE-4140048

PATIENT
  Sex: Male

DRUGS (3)
  1. HUMIRA [Suspect]
     Active Substance: ADALIMUMAB
     Indication: Crohn^s disease
     Route: 058
  2. Moderna [Concomitant]
     Indication: COVID-19 immunisation
     Dosage: BOOSTER
     Route: 030
  3. BioNTech [Concomitant]
     Indication: COVID-19 immunisation
     Route: 030

REACTIONS (6)
  - Influenza like illness [Recovering/Resolving]
  - Headache [Recovering/Resolving]
  - Pain [Recovering/Resolving]
  - Arthralgia [Recovering/Resolving]
  - Cardiac disorder [Unknown]
  - Fatigue [Recovering/Resolving]
